FAERS Safety Report 20845851 (Version 1)
Quarter: 2022Q2

REPORT INFORMATION
  Report Type: Spontaneous
  Country: US (occurrence: US)
  Receive Date: 20220518
  Receipt Date: 20220518
  Transmission Date: 20220721
  Serious: No
  Sender: FDA-Public Use
  Company Number: US-PFIZER INC-202101587375

PATIENT
  Age: 85 Year
  Sex: Female

DRUGS (1)
  1. VYNDAMAX [Suspect]
     Active Substance: TAFAMIDIS
     Indication: Amyloidosis
     Dosage: 61 MG, 1X/DAY
     Route: 048
     Dates: start: 2021

REACTIONS (11)
  - Arthralgia [Unknown]
  - Neuralgia [Unknown]
  - Arthropathy [Unknown]
  - Gait disturbance [Unknown]
  - Pain in extremity [Unknown]
  - Sensory disturbance [Unknown]
  - Oedema peripheral [Unknown]
  - Hypoaesthesia [Unknown]
  - Asthenia [Unknown]
  - Peripheral sensorimotor neuropathy [Unknown]
  - Off label use [Unknown]
